FAERS Safety Report 17089292 (Version 1)
Quarter: 2019Q4

REPORT INFORMATION
  Report Type: Spontaneous
  Country: BR (occurrence: BR)
  Receive Date: 20191128
  Receipt Date: 20191128
  Transmission Date: 20200122
  Serious: Yes (Other)
  Sender: FDA-Public Use
  Company Number: CHPA2007BR015096

PATIENT
  Sex: Male

DRUGS (1)
  1. CALCIUM SANDOZ [Suspect]
     Active Substance: CALCIUM
     Indication: HYPOPARATHYROIDISM
     Dosage: 1 DF, BID
     Route: 065

REACTIONS (2)
  - Drug dependence [Unknown]
  - Cardiac arrest [Unknown]
